FAERS Safety Report 15561790 (Version 1)
Quarter: 2018Q4

REPORT INFORMATION
  Report Type: Spontaneous
  Country: US (occurrence: US)
  Receive Date: 20181029
  Receipt Date: 20181029
  Transmission Date: 20190205
  Serious: No
  Sender: FDA-Public Use
  Company Number: US-SA-2018SA293323

PATIENT
  Sex: Female

DRUGS (1)
  1. LANTUS SOLOSTAR [Suspect]
     Active Substance: INSULIN GLARGINE
     Dosage: 40UNITS IN THE AM/PM
     Route: 065

REACTIONS (4)
  - Visual impairment [Unknown]
  - Needle issue [Unknown]
  - Drug ineffective [Unknown]
  - Device issue [Unknown]
